FAERS Safety Report 5855749-0 (Version None)
Quarter: 2008Q3

REPORT INFORMATION
  Report Type: 
  Country: None (occurrence: None)
  Receive Date: 20080825
  Receipt Date: 20080812
  Transmission Date: 20090109
  Serious: Yes (Other)
  Sender: FDA-Public Use
  Company Number: US-ELI_LILLY_AND_COMPANY-US200807004088

PATIENT
  Age: 55 Year
  Sex: Male

DRUGS (4)
  1. ZYPREXA [Suspect]
     Indication: MOOD SWINGS
     Dosage: 15 MG, 2/D
     Dates: start: 20080201
  2. DEPAKOTE [Concomitant]
     Dosage: 1000 MG, EACH EVENING
  3. ZOLOFT [Concomitant]
     Dosage: 50 G, EACH MORNING
  4. RAMELTEON [Concomitant]
     Dosage: 8 MG, EACH EVENING

REACTIONS (2)
  - OVERDOSE [None]
  - PANCYTOPENIA [None]
